FAERS Safety Report 7717690-8 (Version None)
Quarter: 2011Q3

REPORT INFORMATION
  Report Type: 
  Country: None (occurrence: None)
  Receive Date: 20110830
  Receipt Date: 20110825
  Transmission Date: 20111222
  Serious: Yes (Life-Threatening, Other)
  Sender: FDA-Public Use
  Company Number: JP-SANOFI-AVENTIS-2011SA054551

PATIENT
  Age: 62 Year
  Sex: Male

DRUGS (6)
  1. LOSARTAN POTASSIUM [Concomitant]
  2. RISPERIDONE [Concomitant]
  3. BIPERIDEN HYDROCHLORIDE TAB [Concomitant]
  4. SENNARIDE [Concomitant]
  5. SILECE [Concomitant]
  6. INDAPAMIDE [Suspect]
     Indication: HYPERTENSION
     Route: 048
     Dates: start: 20110602

REACTIONS (7)
  - FALL [None]
  - HYPOKALAEMIA [None]
  - HYPONATRAEMIA [None]
  - ELECTROCARDIOGRAM QT PROLONGED [None]
  - BALANCE DISORDER [None]
  - HYPOCHLORAEMIA [None]
  - AUTONOMIC NERVOUS SYSTEM IMBALANCE [None]
